FAERS Safety Report 12076806 (Version 1)
Quarter: 2016Q1

REPORT INFORMATION
  Report Type: Spontaneous
  Country: US (occurrence: US)
  Receive Date: 20160215
  Receipt Date: 20160215
  Transmission Date: 20160526
  Serious: No
  Sender: FDA-Public Use
  Company Number: CHPA2016US002067

PATIENT
  Age: 88 Year
  Sex: Female

DRUGS (1)
  1. VOLTAREN [Suspect]
     Active Substance: DICLOFENAC SODIUM
     Indication: ARTHRITIS
     Dosage: UNK, USING 4 TIMES, DOWN TO 2 TIMES A DAY
     Route: 061
     Dates: start: 201510

REACTIONS (3)
  - Joint stiffness [Not Recovered/Not Resolved]
  - Inappropriate schedule of drug administration [Unknown]
  - Wrong technique in product usage process [Unknown]

NARRATIVE: CASE EVENT DATE: 201510
